FAERS Safety Report 6584549-1 (Version None)
Quarter: 2010Q1

REPORT INFORMATION
  Report Type: 
  Country: None (occurrence: None)
  Receive Date: 20100213
  Receipt Date: 20100213
  Transmission Date: 20100710
  Serious: Yes (Hospitalization)
  Sender: FDA-Public Use
  Company Number: None

PATIENT
  Age: 60 Year
  Sex: Male
  Weight: 75 kg

DRUGS (5)
  1. PEMETREXED [Suspect]
     Indication: NON-SMALL CELL LUNG CANCER
     Dosage: 500 MG / M2 DAY 1 EACH 21 D CYCLE IV
     Route: 042
     Dates: start: 20100120
  2. MK - 0646 MERCK [Suspect]
     Indication: NON-SMALL CELL LUNG CANCER
     Dosage: 10 MG / KG DAY 1, 8+ 15 EACH CYCLE IV
     Route: 042
     Dates: start: 20100120
  3. MK - 0646 MERCK [Suspect]
     Indication: NON-SMALL CELL LUNG CANCER
     Dosage: 10 MG / KG DAY 1, 8+ 15 EACH CYCLE IV
     Route: 042
     Dates: start: 20100127
  4. MK - 0646 MERCK [Suspect]
     Indication: NON-SMALL CELL LUNG CANCER
     Dosage: 10 MG / KG DAY 1, 8+ 15 EACH CYCLE IV
     Route: 042
     Dates: start: 20100203
  5. CISPLATIN [Concomitant]

REACTIONS (1)
  - DYSPNOEA [None]
